FAERS Safety Report 10190963 (Version 1)
Quarter: 2014Q2

REPORT INFORMATION
  Report Type: Report from Study
  Country: US (occurrence: US)
  Receive Date: 20140523
  Receipt Date: 20140523
  Transmission Date: 20141212
  Serious: Yes (Hospitalization, Other)
  Sender: FDA-Public Use
  Company Number: US-JNJFOC-20140511201

PATIENT
  Age: 24 Year
  Sex: Male
  Weight: 91.63 kg

DRUGS (3)
  1. REMICADE [Suspect]
     Indication: CROHN^S DISEASE
     Dosage: OVER 2 HOURS
     Route: 042
  2. REMICADE [Suspect]
     Indication: CROHN^S DISEASE
     Route: 042
  3. OXYCODONE-ACETAMINOPHEN [Concomitant]
     Dosage: 4 TO 6 HOURS AS NEEDED
     Route: 048

REACTIONS (3)
  - Investigation [Recovering/Resolving]
  - Anal fistula [Unknown]
  - Diarrhoea [Unknown]
